FAERS Safety Report 22747011 (Version 37)
Quarter: 2025Q1

REPORT INFORMATION
  Report Type: Spontaneous
  Country: GB (occurrence: GB)
  Receive Date: 20230725
  Receipt Date: 20250324
  Transmission Date: 20250409
  Serious: Yes (Hospitalization, Other)
  Sender: ROCHE
  Company Number: GB-002147023-NVSC2023GB152984

PATIENT
  Age: 48 Year
  Sex: Female
  Weight: 50 kg

DRUGS (138)
  1. BEVACIZUMAB [Suspect]
     Active Substance: BEVACIZUMAB
     Indication: Colorectal cancer metastatic
     Route: 042
     Dates: start: 20230405
  2. BEVACIZUMAB [Suspect]
     Active Substance: BEVACIZUMAB
     Route: 042
     Dates: start: 20230405
  3. BEVACIZUMAB [Suspect]
     Active Substance: BEVACIZUMAB
     Route: 042
     Dates: start: 20230405
  4. BEVACIZUMAB [Suspect]
     Active Substance: BEVACIZUMAB
     Route: 042
     Dates: start: 20230405
  5. ZOPICLONE [Suspect]
     Active Substance: ZOPICLONE
     Indication: Insomnia
     Route: 048
     Dates: start: 20230523
  6. ZOPICLONE [Suspect]
     Active Substance: ZOPICLONE
     Route: 065
     Dates: start: 20230523
  7. LEUCOVORIN [Suspect]
     Active Substance: LEUCOVORIN\LEUCOVORIN CALCIUM
     Indication: Colorectal cancer metastatic
     Route: 042
     Dates: start: 20230405
  8. LEUCOVORIN [Suspect]
     Active Substance: LEUCOVORIN\LEUCOVORIN CALCIUM
     Route: 042
     Dates: start: 20230405
  9. LEUCOVORIN [Suspect]
     Active Substance: LEUCOVORIN\LEUCOVORIN CALCIUM
     Route: 042
     Dates: start: 20230405
  10. LEUCOVORIN [Suspect]
     Active Substance: LEUCOVORIN\LEUCOVORIN CALCIUM
     Route: 042
     Dates: start: 20230405
  11. LEUCOVORIN [Suspect]
     Active Substance: LEUCOVORIN\LEUCOVORIN CALCIUM
     Route: 042
     Dates: start: 20230405
  12. LEUCOVORIN [Suspect]
     Active Substance: LEUCOVORIN\LEUCOVORIN CALCIUM
     Route: 042
     Dates: start: 20230405
  13. LEUCOVORIN [Suspect]
     Active Substance: LEUCOVORIN\LEUCOVORIN CALCIUM
     Route: 042
     Dates: start: 20230405
  14. LEUCOVORIN [Suspect]
     Active Substance: LEUCOVORIN\LEUCOVORIN CALCIUM
     Route: 042
     Dates: start: 20230405
  15. LEUCOVORIN [Suspect]
     Active Substance: LEUCOVORIN\LEUCOVORIN CALCIUM
     Route: 042
     Dates: start: 20230405
  16. LEUCOVORIN [Suspect]
     Active Substance: LEUCOVORIN\LEUCOVORIN CALCIUM
     Route: 042
     Dates: start: 20230405
  17. LEUCOVORIN [Suspect]
     Active Substance: LEUCOVORIN\LEUCOVORIN CALCIUM
     Route: 042
     Dates: start: 20230405
  18. LEUCOVORIN [Suspect]
     Active Substance: LEUCOVORIN\LEUCOVORIN CALCIUM
     Route: 042
     Dates: start: 20230405
  19. LEUCOVORIN [Suspect]
     Active Substance: LEUCOVORIN\LEUCOVORIN CALCIUM
     Route: 042
     Dates: start: 20230405
  20. LEUCOVORIN [Suspect]
     Active Substance: LEUCOVORIN\LEUCOVORIN CALCIUM
     Route: 042
     Dates: start: 20230405
  21. LEUCOVORIN CALCIUM [Suspect]
     Active Substance: LEUCOVORIN CALCIUM
     Indication: Colorectal cancer metastatic
     Route: 042
     Dates: start: 20230405
  22. LEUCOVORIN CALCIUM [Suspect]
     Active Substance: LEUCOVORIN CALCIUM
     Route: 042
     Dates: start: 20230405
  23. LEUCOVORIN CALCIUM [Suspect]
     Active Substance: LEUCOVORIN CALCIUM
     Route: 042
     Dates: start: 20230405
  24. LEUCOVORIN CALCIUM [Suspect]
     Active Substance: LEUCOVORIN CALCIUM
     Route: 042
     Dates: start: 20230405
  25. LEUCOVORIN CALCIUM [Suspect]
     Active Substance: LEUCOVORIN CALCIUM
     Route: 042
     Dates: start: 20230405
  26. LEUCOVORIN CALCIUM [Suspect]
     Active Substance: LEUCOVORIN CALCIUM
     Route: 042
     Dates: start: 20230405
  27. LEUCOVORIN CALCIUM [Suspect]
     Active Substance: LEUCOVORIN CALCIUM
     Route: 042
     Dates: start: 20230405
  28. LEUCOVORIN CALCIUM [Suspect]
     Active Substance: LEUCOVORIN CALCIUM
     Route: 042
     Dates: start: 20230405
  29. LEUCOVORIN CALCIUM [Suspect]
     Active Substance: LEUCOVORIN CALCIUM
     Route: 042
     Dates: start: 20230405
  30. LEUCOVORIN CALCIUM [Suspect]
     Active Substance: LEUCOVORIN CALCIUM
     Route: 042
     Dates: start: 20230405
  31. LEUCOVORIN CALCIUM [Suspect]
     Active Substance: LEUCOVORIN CALCIUM
     Route: 042
     Dates: start: 20230405
  32. LEUCOVORIN CALCIUM [Suspect]
     Active Substance: LEUCOVORIN CALCIUM
     Route: 042
     Dates: start: 20230405
  33. LEUCOVORIN CALCIUM [Suspect]
     Active Substance: LEUCOVORIN CALCIUM
     Route: 042
     Dates: start: 20230405
  34. LEUCOVORIN CALCIUM [Suspect]
     Active Substance: LEUCOVORIN CALCIUM
     Route: 042
     Dates: start: 20230405
  35. LEUCOVORIN CALCIUM [Suspect]
     Active Substance: LEUCOVORIN CALCIUM
     Route: 042
     Dates: start: 20230405
  36. LEUCOVORIN CALCIUM [Suspect]
     Active Substance: LEUCOVORIN CALCIUM
     Route: 042
     Dates: start: 20230405
  37. LEUCOVORIN CALCIUM [Suspect]
     Active Substance: LEUCOVORIN CALCIUM
     Route: 042
     Dates: start: 20230405
  38. LEUCOVORIN CALCIUM [Suspect]
     Active Substance: LEUCOVORIN CALCIUM
     Route: 042
     Dates: start: 20230405
  39. LEUCOVORIN CALCIUM [Suspect]
     Active Substance: LEUCOVORIN CALCIUM
     Route: 042
     Dates: start: 20230405
  40. LEUCOVORIN CALCIUM [Suspect]
     Active Substance: LEUCOVORIN CALCIUM
     Route: 042
     Dates: start: 20230405
  41. LEUCOVORIN CALCIUM [Suspect]
     Active Substance: LEUCOVORIN CALCIUM
     Route: 042
     Dates: start: 20230405
  42. LEUCOVORIN CALCIUM [Suspect]
     Active Substance: LEUCOVORIN CALCIUM
     Route: 042
     Dates: start: 20230405
  43. LEUCOVORIN CALCIUM [Suspect]
     Active Substance: LEUCOVORIN CALCIUM
     Route: 042
     Dates: start: 20230405
  44. FLUOROURACIL [Suspect]
     Active Substance: FLUOROURACIL
     Indication: Colorectal cancer metastatic
     Route: 042
     Dates: start: 20230405
  45. FLUOROURACIL [Suspect]
     Active Substance: FLUOROURACIL
     Route: 042
     Dates: start: 20230405
  46. FLUOROURACIL [Suspect]
     Active Substance: FLUOROURACIL
     Route: 042
     Dates: start: 20230405
  47. FLUOROURACIL [Suspect]
     Active Substance: FLUOROURACIL
     Route: 065
  48. FLUOROURACIL [Suspect]
     Active Substance: FLUOROURACIL
     Route: 042
     Dates: start: 20230405
  49. FLUOROURACIL [Suspect]
     Active Substance: FLUOROURACIL
     Route: 042
     Dates: start: 20230405
  50. FLUOROURACIL [Suspect]
     Active Substance: FLUOROURACIL
     Route: 042
     Dates: start: 20230405
  51. FLUOROURACIL [Suspect]
     Active Substance: FLUOROURACIL
     Route: 042
     Dates: start: 20230405
  52. FLUOROURACIL [Suspect]
     Active Substance: FLUOROURACIL
     Route: 042
     Dates: start: 20230405
  53. FLUOROURACIL [Suspect]
     Active Substance: FLUOROURACIL
     Route: 042
     Dates: start: 20230405
  54. FLUOROURACIL [Suspect]
     Active Substance: FLUOROURACIL
     Route: 042
     Dates: start: 20230405
  55. FLUOROURACIL [Suspect]
     Active Substance: FLUOROURACIL
     Route: 042
     Dates: start: 20230405
  56. FLUOROURACIL [Suspect]
     Active Substance: FLUOROURACIL
     Route: 050
  57. FLUOROURACIL [Suspect]
     Active Substance: FLUOROURACIL
     Route: 042
  58. FLUOROURACIL [Suspect]
     Active Substance: FLUOROURACIL
     Route: 042
     Dates: start: 20230405
  59. OXALIPLATIN [Suspect]
     Active Substance: OXALIPLATIN
     Indication: Colorectal cancer metastatic
     Route: 042
     Dates: start: 20230405
  60. OXALIPLATIN [Suspect]
     Active Substance: OXALIPLATIN
     Route: 042
  61. OXALIPLATIN [Suspect]
     Active Substance: OXALIPLATIN
     Route: 042
  62. OXALIPLATIN [Suspect]
     Active Substance: OXALIPLATIN
     Route: 042
     Dates: start: 20230405
  63. OXALIPLATIN [Suspect]
     Active Substance: OXALIPLATIN
     Route: 042
  64. OXALIPLATIN [Suspect]
     Active Substance: OXALIPLATIN
     Route: 042
  65. OXALIPLATIN [Suspect]
     Active Substance: OXALIPLATIN
     Route: 042
     Dates: start: 20230405
  66. OXALIPLATIN [Suspect]
     Active Substance: OXALIPLATIN
     Route: 042
     Dates: start: 20230405
  67. OXALIPLATIN [Suspect]
     Active Substance: OXALIPLATIN
     Route: 042
     Dates: start: 20230405
  68. OXALIPLATIN [Suspect]
     Active Substance: OXALIPLATIN
     Route: 065
  69. OXALIPLATIN [Suspect]
     Active Substance: OXALIPLATIN
     Route: 042
  70. OXALIPLATIN [Suspect]
     Active Substance: OXALIPLATIN
     Route: 042
  71. OXALIPLATIN [Suspect]
     Active Substance: OXALIPLATIN
     Route: 042
  72. OXALIPLATIN [Suspect]
     Active Substance: OXALIPLATIN
     Route: 042
  73. OXALIPLATIN [Suspect]
     Active Substance: OXALIPLATIN
     Route: 042
  74. OXALIPLATIN [Suspect]
     Active Substance: OXALIPLATIN
     Route: 042
  75. OXALIPLATIN [Suspect]
     Active Substance: OXALIPLATIN
     Route: 042
  76. OXALIPLATIN [Suspect]
     Active Substance: OXALIPLATIN
     Route: 042
  77. OXALIPLATIN [Suspect]
     Active Substance: OXALIPLATIN
     Route: 042
  78. OXALIPLATIN [Suspect]
     Active Substance: OXALIPLATIN
     Route: 042
  79. OXALIPLATIN [Suspect]
     Active Substance: OXALIPLATIN
     Route: 042
  80. OXALIPLATIN [Suspect]
     Active Substance: OXALIPLATIN
     Route: 042
  81. OXALIPLATIN [Suspect]
     Active Substance: OXALIPLATIN
     Route: 042
  82. OXALIPLATIN [Suspect]
     Active Substance: OXALIPLATIN
     Route: 042
  83. OXALIPLATIN [Suspect]
     Active Substance: OXALIPLATIN
     Route: 042
  84. OXALIPLATIN [Suspect]
     Active Substance: OXALIPLATIN
     Route: 042
  85. OXALIPLATIN [Suspect]
     Active Substance: OXALIPLATIN
     Route: 042
  86. OXALIPLATIN [Suspect]
     Active Substance: OXALIPLATIN
     Route: 042
  87. OXALIPLATIN [Suspect]
     Active Substance: OXALIPLATIN
     Route: 042
  88. OXALIPLATIN [Suspect]
     Active Substance: OXALIPLATIN
     Route: 042
  89. OXALIPLATIN [Suspect]
     Active Substance: OXALIPLATIN
     Route: 042
  90. OXALIPLATIN [Suspect]
     Active Substance: OXALIPLATIN
     Route: 042
  91. OXALIPLATIN [Suspect]
     Active Substance: OXALIPLATIN
     Route: 042
  92. OXALIPLATIN [Suspect]
     Active Substance: OXALIPLATIN
     Route: 042
     Dates: start: 20230405
  93. OXALIPLATIN [Suspect]
     Active Substance: OXALIPLATIN
     Route: 042
     Dates: start: 20230405
  94. OXALIPLATIN [Suspect]
     Active Substance: OXALIPLATIN
     Route: 042
     Dates: start: 20230405
  95. OXALIPLATIN [Suspect]
     Active Substance: OXALIPLATIN
     Route: 042
     Dates: start: 20230405
  96. OXALIPLATIN [Suspect]
     Active Substance: OXALIPLATIN
     Route: 042
     Dates: start: 20230405
  97. OXALIPLATIN [Suspect]
     Active Substance: OXALIPLATIN
     Route: 042
     Dates: start: 20230405
  98. OXALIPLATIN [Suspect]
     Active Substance: OXALIPLATIN
     Route: 042
     Dates: start: 20230405
  99. OXALIPLATIN [Suspect]
     Active Substance: OXALIPLATIN
     Route: 042
     Dates: start: 20230405
  100. OXALIPLATIN [Suspect]
     Active Substance: OXALIPLATIN
     Route: 042
     Dates: start: 20230405
  101. XARELTO [Concomitant]
     Active Substance: RIVAROXABAN
     Indication: Deep vein thrombosis
     Route: 050
     Dates: start: 20230608
  102. XARELTO [Concomitant]
     Active Substance: RIVAROXABAN
     Indication: Pulmonary embolism
     Route: 065
     Dates: start: 20240608
  103. XARELTO [Concomitant]
     Active Substance: RIVAROXABAN
     Route: 065
     Dates: start: 20240608
  104. XARELTO [Concomitant]
     Active Substance: RIVAROXABAN
     Route: 065
     Dates: start: 20240608
  105. XARELTO [Concomitant]
     Active Substance: RIVAROXABAN
     Route: 065
  106. XARELTO [Concomitant]
     Active Substance: RIVAROXABAN
     Route: 065
  107. XARELTO [Concomitant]
     Active Substance: RIVAROXABAN
     Route: 065
  108. XARELTO [Concomitant]
     Active Substance: RIVAROXABAN
     Route: 065
  109. XARELTO [Concomitant]
     Active Substance: RIVAROXABAN
     Route: 065
  110. XARELTO [Concomitant]
     Active Substance: RIVAROXABAN
     Route: 065
  111. XARELTO [Concomitant]
     Active Substance: RIVAROXABAN
     Route: 050
     Dates: start: 20230608
  112. XARELTO [Concomitant]
     Active Substance: RIVAROXABAN
     Route: 050
     Dates: start: 20230608
  113. XARELTO [Concomitant]
     Active Substance: RIVAROXABAN
     Route: 065
  114. BENZYDAMINE [Concomitant]
     Active Substance: BENZYDAMINE
     Indication: Stomatitis
     Route: 048
     Dates: start: 20230605
  115. BENZYDAMINE [Concomitant]
     Active Substance: BENZYDAMINE
     Route: 048
  116. BENZYDAMINE [Concomitant]
     Active Substance: BENZYDAMINE
     Route: 048
  117. BENZYDAMINE [Concomitant]
     Active Substance: BENZYDAMINE
     Route: 048
  118. BENZYDAMINE [Concomitant]
     Active Substance: BENZYDAMINE
     Route: 048
  119. BENZYDAMINE [Concomitant]
     Active Substance: BENZYDAMINE
     Route: 048
  120. BENZYDAMINE [Concomitant]
     Active Substance: BENZYDAMINE
     Route: 048
  121. BENZYDAMINE [Concomitant]
     Active Substance: BENZYDAMINE
     Route: 048
  122. BENZYDAMINE [Concomitant]
     Active Substance: BENZYDAMINE
     Route: 048
     Dates: start: 20230605
  123. BENZYDAMINE [Concomitant]
     Active Substance: BENZYDAMINE
     Route: 048
     Dates: start: 20230605
  124. MORPHINE SULFATE [Concomitant]
     Active Substance: MORPHINE SULFATE
     Indication: Abdominal pain lower
     Route: 050
     Dates: start: 20230502
  125. MORPHINE SULFATE [Concomitant]
     Active Substance: MORPHINE SULFATE
     Route: 050
     Dates: start: 20230502
  126. MORPHINE SULFATE [Concomitant]
     Active Substance: MORPHINE SULFATE
     Route: 050
     Dates: start: 20230502
  127. MORPHINE SULFATE [Concomitant]
     Active Substance: MORPHINE SULFATE
     Route: 050
     Dates: start: 20230502
  128. MORPHINE SULFATE [Concomitant]
     Active Substance: MORPHINE SULFATE
     Route: 050
     Dates: start: 20230502
  129. MORPHINE SULFATE [Concomitant]
     Active Substance: MORPHINE SULFATE
     Route: 050
     Dates: start: 20230502
  130. MORPHINE SULFATE [Concomitant]
     Active Substance: MORPHINE SULFATE
     Route: 050
     Dates: start: 20230502
  131. MORPHINE SULFATE [Concomitant]
     Active Substance: MORPHINE SULFATE
     Route: 050
     Dates: start: 20230502
  132. MORPHINE SULFATE [Concomitant]
     Active Substance: MORPHINE SULFATE
     Route: 050
     Dates: start: 20230502
  133. MORPHINE SULFATE [Concomitant]
     Active Substance: MORPHINE SULFATE
     Route: 050
     Dates: start: 20230502
  134. MORPHINE SULFATE [Concomitant]
     Active Substance: MORPHINE SULFATE
     Route: 050
     Dates: start: 20230502
  135. MORPHINE SULFATE [Concomitant]
     Active Substance: MORPHINE SULFATE
     Route: 050
     Dates: start: 20230502
  136. MORPHINE SULFATE [Concomitant]
     Active Substance: MORPHINE SULFATE
     Route: 050
     Dates: start: 20230502
  137. MORPHINE SULFATE [Concomitant]
     Active Substance: MORPHINE SULFATE
     Route: 050
     Dates: start: 20230502
  138. BENZYDAMINE HYDROCHLORIDE [Concomitant]
     Active Substance: BENZYDAMINE HYDROCHLORIDE
     Indication: Stomatitis
     Route: 065

REACTIONS (4)
  - Ascites [Recovering/Resolving]
  - Colorectal cancer metastatic [Unknown]
  - Malignant neoplasm progression [Unknown]
  - Condition aggravated [Unknown]

NARRATIVE: CASE EVENT DATE: 20230630
